FAERS Safety Report 23592591 (Version 1)
Quarter: 2024Q1

REPORT INFORMATION
  Report Type: Spontaneous
  Country: US (occurrence: US)
  Receive Date: 20240304
  Receipt Date: 20240304
  Transmission Date: 20240410
  Serious: No
  Sender: FDA-Public Use
  Company Number: US-PERRIGO-23US008649

PATIENT
  Sex: Male

DRUGS (3)
  1. NICOTINE POLACRILEX [Suspect]
     Active Substance: NICOTINE
     Indication: Smoking cessation therapy
     Dosage: 1 MG TO 2 MG, EVERY 4 TO 6 HOURS AS NEEDED
     Route: 002
     Dates: start: 2022
  2. NICOTINE POLACRILEX [Suspect]
     Active Substance: NICOTINE
     Dosage: 1 MG TO 2 MG, EVERY 4 TO 6 HOURS PRN
     Route: 002
  3. NICOTINE POLACRILEX [Suspect]
     Active Substance: NICOTINE
     Dosage: 1 MG TO 2 MG, 4 TO 6 HOURS PRN
     Route: 002

REACTIONS (3)
  - Therapeutic product effect decreased [Unknown]
  - Underdose [Recovered/Resolved]
  - Wrong technique in product usage process [Recovered/Resolved]
